FAERS Safety Report 5875584-7 (Version None)
Quarter: 2008Q3

REPORT INFORMATION
  Report Type: 
  Country: None (occurrence: None)
  Receive Date: 20080909
  Receipt Date: 20080827
  Transmission Date: 20090109
  Serious: Yes (Other)
  Sender: FDA-Public Use
  Company Number: US-ELI_LILLY_AND_COMPANY-US200808006058

PATIENT
  Sex: Female

DRUGS (1)
  1. HUMALOG [Suspect]
     Dates: start: 20050101, end: 20080701

REACTIONS (2)
  - EYE HAEMORRHAGE [None]
  - VISUAL ACUITY REDUCED [None]
